FAERS Safety Report 6092180-X (Version None)
Quarter: 2009Q1

REPORT INFORMATION
  Report Type: 
  Country: None (occurrence: None)
  Receive Date: 20090223
  Receipt Date: 20090209
  Transmission Date: 20090719
  Serious: Yes (Hospitalization)
  Sender: FDA-Public Use
  Company Number: 8042798

PATIENT
  Age: 68 Year
  Sex: Male
  Weight: 76.3 kg

DRUGS (7)
  1. CIMZIA [Suspect]
     Indication: CROHN'S DISEASE
     Dosage: 400 MG 1/2W SC
     Route: 058
     Dates: start: 20081027, end: 20081124
  2. CIMZIA [Suspect]
     Indication: CROHN'S DISEASE
     Dosage: 400 MG /M SC
     Route: 058
     Dates: start: 20081223
  3. PREDNISONE [Concomitant]
  4. ENTOCORT EC [Concomitant]
  5. ANDROGEL [Concomitant]
  6. OXYCONTIN [Concomitant]
  7. SLOW FE [Concomitant]

REACTIONS (1)
  - PROSTATE CANCER [None]
